FAERS Safety Report 19444732 (Version 3)
Quarter: 2025Q2

REPORT INFORMATION
  Report Type: Spontaneous
  Country: DE (occurrence: DE)
  Receive Date: 20210621
  Receipt Date: 20250408
  Transmission Date: 20250717
  Serious: Yes (Other)
  Sender: MYLAN
  Company Number: DE-PFIZER INC-2020518555

PATIENT
  Age: 62 Year
  Sex: Male

DRUGS (60)
  1. METHOTREXATE [Suspect]
     Active Substance: METHOTREXATE
     Indication: Central nervous system lymphoma
  2. METHOTREXATE [Suspect]
     Active Substance: METHOTREXATE
  3. METHOTREXATE [Suspect]
     Active Substance: METHOTREXATE
     Route: 042
  4. METHOTREXATE [Suspect]
     Active Substance: METHOTREXATE
     Route: 042
  5. METHOTREXATE [Suspect]
     Active Substance: METHOTREXATE
  6. METHOTREXATE [Suspect]
     Active Substance: METHOTREXATE
  7. METHOTREXATE [Suspect]
     Active Substance: METHOTREXATE
     Route: 042
  8. METHOTREXATE [Suspect]
     Active Substance: METHOTREXATE
     Route: 042
  9. DEXAMETHASONE [Suspect]
     Active Substance: DEXAMETHASONE
     Indication: Central nervous system lymphoma
  10. DEXAMETHASONE [Suspect]
     Active Substance: DEXAMETHASONE
  11. DEXAMETHASONE [Suspect]
     Active Substance: DEXAMETHASONE
     Route: 048
  12. DEXAMETHASONE [Suspect]
     Active Substance: DEXAMETHASONE
     Route: 048
  13. DEXAMETHASONE [Suspect]
     Active Substance: DEXAMETHASONE
  14. DEXAMETHASONE [Suspect]
     Active Substance: DEXAMETHASONE
  15. DEXAMETHASONE [Suspect]
     Active Substance: DEXAMETHASONE
     Route: 048
  16. DEXAMETHASONE [Suspect]
     Active Substance: DEXAMETHASONE
     Route: 048
  17. CYTARABINE [Suspect]
     Active Substance: CYTARABINE
     Indication: Central nervous system lymphoma
  18. CYTARABINE [Suspect]
     Active Substance: CYTARABINE
  19. CYTARABINE [Suspect]
     Active Substance: CYTARABINE
     Route: 042
  20. CYTARABINE [Suspect]
     Active Substance: CYTARABINE
     Route: 042
  21. CYTARABINE [Suspect]
     Active Substance: CYTARABINE
  22. CYTARABINE [Suspect]
     Active Substance: CYTARABINE
  23. CYTARABINE [Suspect]
     Active Substance: CYTARABINE
     Route: 042
  24. CYTARABINE [Suspect]
     Active Substance: CYTARABINE
     Route: 042
  25. CYTARABINE [Suspect]
     Active Substance: CYTARABINE
  26. CYTARABINE [Suspect]
     Active Substance: CYTARABINE
     Route: 065
  27. CYTARABINE [Suspect]
     Active Substance: CYTARABINE
  28. CYTARABINE [Suspect]
     Active Substance: CYTARABINE
     Route: 065
  29. CYCLOPHOSPHAMIDE [Suspect]
     Active Substance: CYCLOPHOSPHAMIDE
     Indication: Central nervous system lymphoma
  30. CYCLOPHOSPHAMIDE [Suspect]
     Active Substance: CYCLOPHOSPHAMIDE
     Route: 042
  31. CYCLOPHOSPHAMIDE [Suspect]
     Active Substance: CYCLOPHOSPHAMIDE
     Route: 042
  32. CYCLOPHOSPHAMIDE [Suspect]
     Active Substance: CYCLOPHOSPHAMIDE
  33. PREDNISOLONE [Suspect]
     Active Substance: PREDNISOLONE
     Indication: Central nervous system lymphoma
  34. PREDNISOLONE [Suspect]
     Active Substance: PREDNISOLONE
     Route: 042
  35. PREDNISOLONE [Suspect]
     Active Substance: PREDNISOLONE
     Route: 042
  36. PREDNISOLONE [Suspect]
     Active Substance: PREDNISOLONE
  37. VINDESINE [Suspect]
     Active Substance: VINDESINE
     Indication: Central nervous system lymphoma
  38. VINDESINE [Suspect]
     Active Substance: VINDESINE
     Route: 042
  39. VINDESINE [Suspect]
     Active Substance: VINDESINE
     Route: 042
  40. VINDESINE [Suspect]
     Active Substance: VINDESINE
  41. VINCRISTINE SULFATE [Suspect]
     Active Substance: VINCRISTINE SULFATE
     Indication: Central nervous system lymphoma
  42. VINCRISTINE SULFATE [Suspect]
     Active Substance: VINCRISTINE SULFATE
     Route: 042
  43. VINCRISTINE SULFATE [Suspect]
     Active Substance: VINCRISTINE SULFATE
     Route: 042
  44. VINCRISTINE SULFATE [Suspect]
     Active Substance: VINCRISTINE SULFATE
  45. IFOSFAMIDE [Suspect]
     Active Substance: IFOSFAMIDE
     Indication: Central nervous system lymphoma
  46. IFOSFAMIDE [Suspect]
     Active Substance: IFOSFAMIDE
     Route: 042
  47. IFOSFAMIDE [Suspect]
     Active Substance: IFOSFAMIDE
     Route: 042
  48. IFOSFAMIDE [Suspect]
     Active Substance: IFOSFAMIDE
  49. MESNA [Concomitant]
     Active Substance: MESNA
     Indication: Prophylaxis
  50. MESNA [Concomitant]
     Active Substance: MESNA
     Route: 065
  51. MESNA [Concomitant]
     Active Substance: MESNA
     Route: 065
  52. MESNA [Concomitant]
     Active Substance: MESNA
  53. TROPISETRON [Concomitant]
     Active Substance: TROPISETRON
     Indication: Prophylaxis of nausea and vomiting
  54. TROPISETRON [Concomitant]
     Active Substance: TROPISETRON
     Route: 065
  55. TROPISETRON [Concomitant]
     Active Substance: TROPISETRON
     Route: 065
  56. TROPISETRON [Concomitant]
     Active Substance: TROPISETRON
  57. ONDANSETRON [Concomitant]
     Active Substance: ONDANSETRON
     Indication: Prophylaxis of nausea and vomiting
  58. ONDANSETRON [Concomitant]
     Active Substance: ONDANSETRON
     Route: 065
  59. ONDANSETRON [Concomitant]
     Active Substance: ONDANSETRON
     Route: 065
  60. ONDANSETRON [Concomitant]
     Active Substance: ONDANSETRON

REACTIONS (6)
  - Renal disorder [Unknown]
  - Leukopenia [Unknown]
  - Thrombocytopenia [Unknown]
  - Postoperative wound infection [Unknown]
  - Alopecia areata [Unknown]
  - Magnetic resonance imaging head abnormal [Unknown]
